FAERS Safety Report 9736156 (Version 1)
Quarter: 2013Q4

REPORT INFORMATION
  Report Type: Report from Study
  Country: ZA (occurrence: ZA)
  Receive Date: 20131206
  Receipt Date: 20131206
  Transmission Date: 20140711
  Serious: Yes (Hospitalization)
  Sender: FDA-Public Use
  Company Number: ZA-ROCHE-1311177

PATIENT
  Age: 73 Year
  Sex: Male

DRUGS (6)
  1. MIRCERA [Suspect]
     Indication: NEPHROGENIC ANAEMIA
     Route: 058
     Dates: start: 201204
  2. MIRCERA [Suspect]
     Route: 058
     Dates: start: 201210
  3. CALCIUM SANDOZ D [Concomitant]
     Dosage: 1 TABLET EVERY DAY
     Route: 065
  4. PREXUM [Concomitant]
     Route: 065
  5. ADALAT XL [Concomitant]
     Route: 065
  6. SIMVASTATIN [Concomitant]
     Dosage: 20MG AT NIGHT (NOCTE)
     Route: 065

REACTIONS (1)
  - Pneumonia [Recovered/Resolved]
